FAERS Safety Report 6187799-1 (Version None)
Quarter: 2009Q2

REPORT INFORMATION
  Report Type: 
  Country: None (occurrence: None)
  Receive Date: 20090511
  Receipt Date: 20090511
  Transmission Date: 20091009
  Serious: No
  Sender: FDA-Public Use
  Company Number: None

PATIENT
  Age: 80 Year
  Sex: Female
  Weight: 56.6996 kg

DRUGS (3)
  1. AVELOX [Suspect]
     Indication: SUDDEN HEARING LOSS
     Dosage: 400 MG ONCE DAILY
     Dates: start: 20090327
  2. AVELOX [Suspect]
     Indication: SUDDEN HEARING LOSS
     Dosage: 400 MG ONCE DAILY
     Dates: start: 20090328
  3. AVELOX [Suspect]
     Indication: SUDDEN HEARING LOSS
     Dosage: 400 MG ONCE DAILY
     Dates: start: 20090329

REACTIONS (2)
  - HYPOACUSIS [None]
  - SUDDEN HEARING LOSS [None]
